FAERS Safety Report 5934890-8 (Version None)
Quarter: 2008Q4

REPORT INFORMATION
  Report Type: 
  Country: None (occurrence: None)
  Receive Date: 20081027
  Receipt Date: 20081009
  Transmission Date: 20090506
  Serious: Yes (Other)
  Sender: FDA-Public Use
  Company Number: 2008BI012090

PATIENT
  Age: 52 Year
  Sex: Female

DRUGS (8)
  1. TYSABRI [Suspect]
     Indication: MULTIPLE SCLEROSIS
     Dosage: 300 MG; QM; IV
     Route: 042
     Dates: start: 20080408, end: 20080506
  2. NEURONTIN [Concomitant]
  3. DETROL LA [Concomitant]
  4. IMIPRAMINE [Concomitant]
  5. BACLOFEN [Concomitant]
  6. HYDREA [Concomitant]
  7. COPAXONE [Concomitant]
  8. BETASERON [Concomitant]

REACTIONS (6)
  - ANAPHYLACTOID REACTION [None]
  - BLOOD PRESSURE SYSTOLIC INCREASED [None]
  - CHEST PAIN [None]
  - HYPOTENSION [None]
  - MOVEMENT DISORDER [None]
  - TREMOR [None]
